FAERS Safety Report 24756217 (Version 1)
Quarter: 2024Q4

REPORT INFORMATION
  Report Type: Report from Study
  Country: US (occurrence: US)
  Receive Date: 20241220
  Receipt Date: 20241220
  Transmission Date: 20250115
  Serious: Yes (Hospitalization)
  Sender: ABBVIE
  Company Number: US-ABBVIE-6046475

PATIENT
  Age: 47 Year
  Sex: Female

DRUGS (1)
  1. RINVOQ [Suspect]
     Active Substance: UPADACITINIB
     Indication: Rheumatoid arthritis
     Route: 048
     Dates: start: 20241014

REACTIONS (5)
  - Blood pressure increased [Recovering/Resolving]
  - COVID-19 [Recovering/Resolving]
  - Respiratory syncytial virus infection [Recovering/Resolving]
  - Chest pain [Recovering/Resolving]
  - Wheezing [Recovering/Resolving]

NARRATIVE: CASE EVENT DATE: 20240101
